FAERS Safety Report 6184225-3 (Version None)
Quarter: 2009Q2

REPORT INFORMATION
  Report Type: 
  Country: None (occurrence: None)
  Receive Date: 20090508
  Receipt Date: 20090420
  Transmission Date: 20091009
  Serious: Yes (Life-Threatening, Hospitalization, Other)
  Sender: FDA-Public Use
  Company Number: PHEH2009US04079

PATIENT
  Sex: Female
  Weight: 63.039 kg

DRUGS (8)
  1. RECLAST [Suspect]
     Indication: OSTEOPOROSIS
     Dosage: 1DOSE IN 2008, 2ND ON 26 MAR 2009 5 MG IV
     Dates: start: 20080101, end: 20080101
  2. RECLAST [Suspect]
     Dosage: UNK
     Dates: start: 20080101
  3. LEXAPRO [Concomitant]
     Dosage: 10 MG, QD
  4. LOVAZA [Concomitant]
     Dosage: UNK
  5. ZESTRIL [Concomitant]
     Indication: HYPERTENSION
     Dosage: 40 MG, QD
  6. LESCOL XL [Concomitant]
     Dosage: 80 MG, QD
  7. ZETIA [Concomitant]
     Dosage: UNK, UNK
  8. HYDROCHLOROTHIAZIDE [Concomitant]
     Indication: HYPERTENSION
     Dosage: 25 MG, QD
     Dates: start: 20090319, end: 20090331

REACTIONS (16)
  - ABDOMINAL DISCOMFORT [None]
  - ANOREXIA [None]
  - BIOPSY KIDNEY ABNORMAL [None]
  - BLOOD CREATININE INCREASED [None]
  - BLOOD UREA INCREASED [None]
  - CARDIAC DISORDER [None]
  - CORONARY ARTERY BYPASS [None]
  - DIALYSIS [None]
  - FATIGUE [None]
  - MALAISE [None]
  - NAUSEA [None]
  - OEDEMA PERIPHERAL [None]
  - RENAL FAILURE [None]
  - RENAL TUBULAR NECROSIS [None]
  - URINE OUTPUT DECREASED [None]
  - VOMITING [None]
